FAERS Safety Report 7829076-6 (Version None)
Quarter: 2011Q4

REPORT INFORMATION
  Report Type: 
  Country: None (occurrence: None)
  Receive Date: 20111020
  Receipt Date: 20111014
  Transmission Date: 20120403
  Serious: Yes (Hospitalization)
  Sender: FDA-Public Use
  Company Number: US-CEPHALON-2011005398

PATIENT
  Sex: Female

DRUGS (6)
  1. NUVIGIL [Suspect]
     Route: 048
     Dates: start: 20100901, end: 20110301
  2. AMLODIPINE [Concomitant]
  3. LIPITOR [Concomitant]
  4. INSULIN PUMP [Concomitant]
  5. BENICAR [Concomitant]
  6. NUVIGIL [Suspect]
     Route: 048
     Dates: start: 20111001

REACTIONS (2)
  - BRUXISM [None]
  - TONSILLECTOMY [None]
